FAERS Safety Report 4727149-8 (Version None)
Quarter: 2005Q3

REPORT INFORMATION
  Report Type: 
  Country: None (occurrence: None)
  Receive Date: 20050726
  Receipt Date: 20030409
  Transmission Date: 20060218
  Serious: No
  Sender: FDA-Public Use
  Company Number: 03H-163-0216328

PATIENT

DRUGS (1)
  1. DOBUTAMINE INJECTION (DOBUTAMINE HYDROCHLORIDE INJECTION (DOBUTAMINE H [Suspect]
     Indication: CARDIAC FAILURE CONGESTIVE
     Dosage: INTRAVENOUS, MEDIAN DURATION
     Route: 042

REACTIONS (1)
  - CARDIAC ARREST [None]
